FAERS Safety Report 9608597 (Version 1)
Quarter: 2013Q4

REPORT INFORMATION
  Report Type: Spontaneous
  Country: DE (occurrence: None)
  Receive Date: 20131007
  Receipt Date: 20131007
  Transmission Date: 20140711
  Serious: Yes (Life-Threatening, Hospitalization)
  Sender: FDA-Public Use
  Company Number: DSM-2013-00904

PATIENT
  Age: 44 Year
  Sex: Female
  Weight: 96 kg

DRUGS (1)
  1. VOCADO [Suspect]
     Indication: HYPERTENSION
     Dosage: 40/10/25 MG (1 IN 1 D), ORAL
     Route: 048
     Dates: end: 201304

REACTIONS (8)
  - Nausea [None]
  - Vomiting [None]
  - Diarrhoea [None]
  - Blood pressure decreased [None]
  - Swelling face [None]
  - Erythema [None]
  - Renal failure [None]
  - Cardiovascular disorder [None]
